FAERS Safety Report 17648979 (Version 2)
Quarter: 2020Q2

REPORT INFORMATION
  Report Type: Spontaneous
  Country: US (occurrence: US)
  Receive Date: 20200408
  Receipt Date: 20200413
  Transmission Date: 20200713
  Serious: No
  Sender: FDA-Public Use
  Company Number: US-PFIZER INC-2020144281

PATIENT
  Age: 13 Year
  Sex: Female

DRUGS (1)
  1. EUCRISA [Suspect]
     Active Substance: CRISABOROLE
     Dosage: UNK, 1X/DAY (APPLY TO AFFECTED AREA(S) ONCE DAILY)

REACTIONS (3)
  - Erythema [Unknown]
  - Off label use [Unknown]
  - Burning sensation [Unknown]
